FAERS Safety Report 5124036-0 (Version None)
Quarter: 2006Q4

REPORT INFORMATION
  Report Type: 
  Country: None (occurrence: None)
  Receive Date: 20061010
  Receipt Date: 20051115
  Transmission Date: 20070319
  Serious: Yes (Hospitalization, Other)
  Sender: FDA-Public Use
  Company Number: PHBS2005JP16946

PATIENT
  Age: 53 Year
  Sex: Male
  Weight: 66 kg

DRUGS (10)
  1. GLEEVEC [Suspect]
     Indication: CHRONIC MYELOID LEUKAEMIA
     Route: 048
  2. GLEEVEC [Suspect]
     Dosage: 600 MG/D
     Route: 048
     Dates: start: 20050727, end: 20051017
  3. GLEEVEC [Suspect]
     Dosage: 300 MG/DAY
     Route: 048
     Dates: start: 20051018, end: 20051109
  4. GLEEVEC [Suspect]
     Dosage: 600 MG/DAY
     Route: 048
     Dates: start: 20051110
  5. SELBEX [Suspect]
     Indication: GASTRIC ULCER
     Dosage: 3 DF/DAY
     Route: 048
     Dates: start: 20051008, end: 20051019
  6. THIATON [Suspect]
     Indication: GASTRIC ULCER
     Dosage: 1.5 G/DAY
     Route: 048
     Dates: start: 20050725, end: 20051019
  7. LANSOPRAZOLE [Suspect]
     Indication: GASTRIC ULCER
     Dosage: 1 DF, QD
     Route: 048
     Dates: start: 20050725
  8. AMOBAN [Suspect]
     Indication: INSOMNIA
     Dosage: 1 DF, QD
     Route: 048
     Dates: start: 20051008, end: 20051216
  9. LUPRAC [Concomitant]
     Dosage: 4 MG, QD
     Route: 048
     Dates: start: 20050930, end: 20051019
  10. DIURETICS [Concomitant]
     Indication: OEDEMA
     Dates: start: 20050101

REACTIONS (9)
  - ABDOMINAL DISCOMFORT [None]
  - ACUTE PROMYELOCYTIC LEUKAEMIA [None]
  - BLAST CELLS PRESENT [None]
  - INSOMNIA [None]
  - OEDEMA [None]
  - PLATELET COUNT DECREASED [None]
  - PRURITUS [None]
  - SKIN EXFOLIATION [None]
  - WHITE BLOOD CELL COUNT DECREASED [None]
